FAERS Safety Report 4913726-8 (Version None)
Quarter: 2006Q1

REPORT INFORMATION
  Report Type: 
  Country: None (occurrence: None)
  Receive Date: 20060210
  Receipt Date: 20060206
  Transmission Date: 20060701
  Serious: Yes (Life-Threatening)
  Sender: FDA-Public Use
  Company Number: HQWYE688206FEB06

PATIENT
  Age: 70 Year
  Sex: Female

DRUGS (8)
  1. CORDARONE [Suspect]
     Indication: ATRIAL FIBRILLATION
     Dosage: SEE IMAGE
     Dates: start: 20051205, end: 20051201
  2. CORDARONE [Suspect]
     Indication: ATRIAL FLUTTER
     Dosage: SEE IMAGE
     Dates: start: 20051205, end: 20051201
  3. CORDARONE [Suspect]
     Indication: ATRIAL FIBRILLATION
     Dosage: SEE IMAGE
     Dates: start: 20051201, end: 20051229
  4. CORDARONE [Suspect]
     Indication: ATRIAL FLUTTER
     Dosage: SEE IMAGE
     Dates: start: 20051201, end: 20051229
  5. METOPROLOL SUCCINATE [Suspect]
     Dosage: 1 UNIT 1X PER 1 DAY ORAL
     Route: 048
     Dates: start: 20051209, end: 20051229
  6. DILTIAZEM [Suspect]
     Dosage: 60 MG 2X PER 1 DAY ORAL
     Route: 048
     Dates: start: 20051201, end: 20051229
  7. ACETYLSALICYLIC ACID SRT [Concomitant]
  8. SINTROM [Concomitant]

REACTIONS (6)
  - BRADYCARDIA [None]
  - CARDIO-RESPIRATORY ARREST [None]
  - DRUG INTERACTION [None]
  - QUADRIPARESIS [None]
  - SINUS TACHYCARDIA [None]
  - SYNCOPE [None]
